FAERS Safety Report 17978984 (Version 2)
Quarter: 2022Q1

REPORT INFORMATION
  Report Type: Spontaneous
  Country: US (occurrence: US)
  Receive Date: 20200703
  Receipt Date: 20220211
  Transmission Date: 20220424
  Serious: Yes (Other)
  Sender: FDA-Public Use
  Company Number: US-SAARTEMIS-SAC202007010206

PATIENT
  Age: 36 Year
  Sex: Male

DRUGS (2)
  1. ZANTAC [Suspect]
     Active Substance: RANITIDINE HYDROCHLORIDE
     Indication: Gastrooesophageal reflux disease
     Dosage: 150 MG, QD
     Dates: start: 199701, end: 201904
  2. ZANTAC [Suspect]
     Active Substance: RANITIDINE HYDROCHLORIDE
     Indication: Dyspepsia

REACTIONS (3)
  - Leukaemia [Unknown]
  - Haematological malignancy [Unknown]
  - Polycythaemia vera [Unknown]

NARRATIVE: CASE EVENT DATE: 20020101
